FAERS Safety Report 6027195-0 (Version None)
Quarter: 2008Q4

REPORT INFORMATION
  Report Type: 
  Country: None (occurrence: None)
  Receive Date: 20081231
  Receipt Date: 20081231
  Transmission Date: 20090506
  Serious: No
  Sender: FDA-Public Use
  Company Number: None

PATIENT
  Sex: Female
  Weight: 58.9676 kg

DRUGS (2)
  1. BONIVA [Suspect]
     Indication: OSTEOPENIA
     Dosage: 150MG  ONCE/MONTH PO
     Route: 048
  2. BONIVA [Suspect]
     Indication: OSTEOPOROSIS
     Dosage: 150MG  ONCE/MONTH PO
     Route: 048

REACTIONS (3)
  - GAIT DISTURBANCE [None]
  - OSTEONECROSIS [None]
  - WALKING AID USER [None]
